FAERS Safety Report 11999741 (Version 1)
Quarter: 2016Q1

REPORT INFORMATION
  Report Type: Spontaneous
  Country: US (occurrence: US)
  Receive Date: 20160204
  Receipt Date: 20160204
  Transmission Date: 20160526
  Serious: No
  Sender: FDA-Public Use
  Company Number: US-BAYER-2016-022153

PATIENT
  Age: 67 Year
  Sex: Female
  Weight: 47.62 kg

DRUGS (3)
  1. MIRALAX [Suspect]
     Active Substance: POLYETHYLENE GLYCOL 3350
     Dosage: 0.5 DF, QD HALF A CAPFUL
     Route: 048
     Dates: start: 2013
  2. CITRICAL [Concomitant]
     Active Substance: CALCIUM CITRATE
  3. PREVACID [Concomitant]
     Active Substance: LANSOPRAZOLE

REACTIONS (2)
  - Product use issue [None]
  - Diarrhoea [None]
